FAERS Safety Report 19527081 (Version 1)
Quarter: 2021Q3

REPORT INFORMATION
  Report Type: Spontaneous
  Country: US (occurrence: US)
  Receive Date: 20210713
  Receipt Date: 20210713
  Transmission Date: 20211014
  Serious: Yes (Hospitalization)
  Sender: FDA-Public Use
  Company Number: None

PATIENT
  Sex: Male

DRUGS (2)
  1. ENTECAVIR TAB [Suspect]
     Active Substance: ENTECAVIR
     Indication: HEPATITIS B
     Route: 048
     Dates: start: 20210620
  2. NIACIN. [Suspect]
     Active Substance: NIACIN

REACTIONS (4)
  - Rash [None]
  - Dehydration [None]
  - Nausea [None]
  - Vomiting [None]
